FAERS Safety Report 8795592 (Version 1)
Quarter: 2012Q4

REPORT INFORMATION
  Report Type: 
  Country: US (occurrence: US)
  Receive Date: 20120917
  Receipt Date: 20120917
  Transmission Date: 20130627
  Serious: Yes (Other)
  Sender: FDA-Public Use
  Company Number: US-CELGENEUS-163-21880-12091056

PATIENT
  Sex: Female

DRUGS (7)
  1. REVLIMID [Suspect]
     Indication: MULTIPLE MYELOMA
     Dosage: 25 Milligram
     Route: 048
     Dates: start: 20120327
  2. VELCADE [Concomitant]
     Indication: DRUG USE FOR UNKNOWN INDICATION
     Route: 065
  3. LISINOPRIL [Concomitant]
     Indication: DRUG USE FOR UNKNOWN INDICATION
     Route: 065
  4. VERAPAMIL [Concomitant]
     Indication: DRUG USE FOR UNKNOWN INDICATION
     Route: 065
  5. VERAPAMIL [Concomitant]
     Dosage: reduced dose
     Route: 065
  6. TOPROL [Concomitant]
     Indication: DRUG USE FOR UNKNOWN INDICATION
     Route: 065
  7. TOPROL [Concomitant]
     Dosage: reduced dose
     Route: 065

REACTIONS (3)
  - Arrhythmia [Unknown]
  - Blood pressure abnormal [Unknown]
  - Sinusitis [Recovered/Resolved]
